FAERS Safety Report 8268794-5 (Version None)
Quarter: 2012Q2

REPORT INFORMATION
  Report Type: 
  Country: None (occurrence: None)
  Receive Date: 20120409
  Receipt Date: 20120409
  Transmission Date: 20120825
  Serious: Yes (Other)
  Sender: FDA-Public Use
  Company Number: None

PATIENT
  Sex: Female
  Weight: 87.543 kg

DRUGS (3)
  1. CISPLATIN [Concomitant]
     Indication: OVARIAN CANCER METASTATIC
     Dosage: 145
     Route: 041
     Dates: start: 20111205, end: 20120321
  2. GEMZAR [Suspect]
  3. GEMZAR [Suspect]
     Indication: OVARIAN CANCER METASTATIC
     Dosage: 1460
     Route: 041
     Dates: start: 20111205, end: 20120328

REACTIONS (3)
  - PAIN IN EXTREMITY [None]
  - OEDEMA PERIPHERAL [None]
  - PRURITUS [None]
